FAERS Safety Report 6555849-6 (Version None)
Quarter: 2010Q1

REPORT INFORMATION
  Report Type: 
  Country: None (occurrence: None)
  Receive Date: 20100128
  Receipt Date: 20100122
  Transmission Date: 20100710
  Serious: Yes (Other)
  Sender: FDA-Public Use
  Company Number: OM-ROXANE LABORATORIES, INC.-2010-RO-00109RO

PATIENT
  Age: 8 Year
  Sex: Female

DRUGS (16)
  1. METHOTREXATE [Suspect]
     Indication: JUVENILE ARTHRITIS
  2. METHOTREXATE [Suspect]
  3. METHOTREXATE [Suspect]
  4. NAPROXEN [Suspect]
     Indication: ARTHRITIS
  5. NAPROXEN [Suspect]
     Indication: PERICARDITIS INFECTIVE
  6. PREDNISONE [Suspect]
     Indication: ARTHRITIS
     Route: 048
  7. PREDNISONE [Suspect]
  8. CEFTRIAXONE [Suspect]
     Indication: PERICARDITIS INFECTIVE
  9. METHYLPREDNISOLONE [Suspect]
     Indication: ARTHRITIS
  10. INDOMETHACIN [Suspect]
     Indication: ARTHRITIS
  11. NSAIDS [Suspect]
     Indication: ARTHRITIS
  12. CORTICOSTEROIDS [Suspect]
     Indication: ARTHRITIS
     Route: 014
  13. CORTICOSTEROIDS [Suspect]
  14. IMMUNE GLOBULIN NOS [Suspect]
     Indication: ARTHRITIS
     Route: 042
  15. CYCLOSPORINE [Suspect]
     Indication: ARTHRITIS
     Dosage: 175 MG
  16. FOLIC ACID [Suspect]
     Indication: ARTHRITIS

REACTIONS (4)
  - ARTHRITIS [None]
  - DISEASE PROGRESSION [None]
  - JUVENILE ARTHRITIS [None]
  - RHEUMATOID NODULE [None]
